FAERS Safety Report 25897299 (Version 2)
Quarter: 2025Q4

REPORT INFORMATION
  Report Type: Spontaneous
  Country: US (occurrence: US)
  Receive Date: 20251008
  Receipt Date: 20251017
  Transmission Date: 20260117
  Serious: Yes (Other)
  Sender: NOVO NORDISK
  Company Number: US-NOVOPROD-1532451

PATIENT
  Age: 79 Year
  Sex: Female

DRUGS (3)
  1. WEGOVY [Suspect]
     Active Substance: SEMAGLUTIDE
     Indication: Obesity
     Dosage: 1 MG, QW
     Route: 058
     Dates: start: 20250509, end: 20250924
  2. WEGOVY [Suspect]
     Active Substance: SEMAGLUTIDE
     Indication: Coronary artery disease
  3. WEGOVY [Suspect]
     Active Substance: SEMAGLUTIDE
     Indication: Arteriosclerosis

REACTIONS (4)
  - Iron deficiency anaemia [Not Recovered/Not Resolved]
  - Diarrhoea [Not Recovered/Not Resolved]
  - Faeces pale [Not Recovered/Not Resolved]
  - Drug dose titration not performed [Unknown]

NARRATIVE: CASE EVENT DATE: 20250509
